FAERS Safety Report 5993077-3 (Version None)
Quarter: 2008Q4

REPORT INFORMATION
  Report Type: 
  Country: None (occurrence: None)
  Receive Date: 20081210
  Receipt Date: 20081204
  Transmission Date: 20090506
  Serious: Yes (Hospitalization, Disabling)
  Sender: FDA-Public Use
  Company Number: 1000003070

PATIENT
  Age: 26 Year
  Sex: Female

DRUGS (1)
  1. LEXAPRO [Suspect]
     Indication: DEPRESSION
     Dosage: 10 MG (10 MG, 1 IN 1 D), ORAL
     Route: 048
     Dates: start: 20041201, end: 20041201

REACTIONS (5)
  - AMNESIA [None]
  - GRAND MAL CONVULSION [None]
  - HAND FRACTURE [None]
  - SPINAL FRACTURE [None]
  - UNRESPONSIVE TO STIMULI [None]
